FAERS Safety Report 4450122-4 (Version None)
Quarter: 2004Q3

REPORT INFORMATION
  Report Type: 
  Country: None (occurrence: None)
  Receive Date: 20040802
  Receipt Date: 20031110
  Transmission Date: 20050211
  Serious: Yes (Other)
  Sender: FDA-Public Use
  Company Number: US-SHR-03-017204

PATIENT
  Age: 51 Year
  Sex: Male
  Weight: 136.1 kg

DRUGS (7)
  1. MAGNEVIST [Suspect]
     Indication: NUCLEAR MAGNETIC RESONANCE IMAGING
     Dosage: 20 + 5 + 1 ML, 1 DOSE, INTRAVENOUS
     Route: 042
     Dates: start: 20031110, end: 20031110
  2. MAGNEVIST [Suspect]
     Indication: NUCLEAR MAGNETIC RESONANCE IMAGING
     Dosage: 20 + 5 + 1 ML, 1 DOSE, INTRAVENOUS
     Route: 042
     Dates: start: 20031110, end: 20031110
  3. MAGNEVIST [Suspect]
     Indication: NUCLEAR MAGNETIC RESONANCE IMAGING
     Dosage: 20 + 5 + 1 ML, 1 DOSE, INTRAVENOUS
     Route: 042
     Dates: start: 20031110, end: 20031110
  4. MAGNEVIST [Concomitant]
  5. MAGNEVIST [Concomitant]
  6. LORTAB [Concomitant]
  7. SOMA [Concomitant]

REACTIONS (5)
  - BLOOD PRESSURE DECREASED [None]
  - DYSGEUSIA [None]
  - PRURITUS [None]
  - SWELLING FACE [None]
  - URTICARIA [None]
